FAERS Safety Report 7264895-9 (Version None)
Quarter: 2011Q1

REPORT INFORMATION
  Report Type: 
  Country: None (occurrence: None)
  Receive Date: 20110131
  Receipt Date: 20101029
  Transmission Date: 20110831
  Serious: Yes (Hospitalization)
  Sender: FDA-Public Use
  Company Number: US-BAYER-201035996NA

PATIENT
  Sex: Female
  Weight: 94.785 kg

DRUGS (6)
  1. OCELLA [Suspect]
     Indication: ACNE
     Dosage: UNK
     Dates: start: 20050301
  2. YAZ [Suspect]
     Indication: ACNE
     Dosage: UNK
     Dates: start: 20050301
  3. YAZ [Suspect]
     Dosage: UNK
     Dates: start: 20070329
  4. TRAMADOL HCL [Concomitant]
     Dosage: UNK
     Dates: start: 20081117
  5. YASMIN [Suspect]
     Indication: ACNE
     Dosage: UNK
     Dates: start: 20050301, end: 20080501
  6. LORTAB [Concomitant]
     Indication: PAIN
     Dosage: UNK
     Dates: start: 20081124

REACTIONS (3)
  - CHOLECYSTITIS CHRONIC [None]
  - NAUSEA [None]
  - CHOLELITHIASIS [None]
